FAERS Safety Report 22282478 (Version 10)
Quarter: 2024Q1

REPORT INFORMATION
  Report Type: Spontaneous
  Country: US (occurrence: US)
  Receive Date: 20230504
  Receipt Date: 20240115
  Transmission Date: 20240410
  Serious: No
  Sender: FDA-Public Use
  Company Number: US-GLAXOSMITHKLINE-US2023AMR064337

PATIENT
  Sex: Female

DRUGS (5)
  1. ZEJULA [Suspect]
     Active Substance: NIRAPARIB
     Indication: Ovarian cancer
     Dosage: 300 MG, QD
     Dates: end: 20230510
  2. ZEJULA [Suspect]
     Active Substance: NIRAPARIB
     Dosage: 300 MG, QD
  3. ZEJULA [Suspect]
     Active Substance: NIRAPARIB
     Indication: Ovarian cancer
     Dosage: 300 MG, QD
  4. ZEJULA [Suspect]
     Active Substance: NIRAPARIB
     Dosage: 100 MG, QD
  5. CORTISONE ACETATE [Concomitant]
     Active Substance: CORTISONE ACETATE
     Indication: Product used for unknown indication
     Dosage: UNK
     Route: 042

REACTIONS (20)
  - Pain in extremity [Recovered/Resolved]
  - Bursitis [Unknown]
  - Nausea [Recovering/Resolving]
  - Vomiting [Recovering/Resolving]
  - Dry mouth [Unknown]
  - Constipation [Recovering/Resolving]
  - Hot flush [Unknown]
  - Pollakiuria [Unknown]
  - Platelet count decreased [Not Recovered/Not Resolved]
  - White blood cell count increased [Unknown]
  - Fatigue [Unknown]
  - Dyspnoea [Not Recovered/Not Resolved]
  - Cough [Unknown]
  - Heart rate increased [Unknown]
  - Dyspepsia [Unknown]
  - Abdominal pain upper [Recovering/Resolving]
  - Diarrhoea [Recovering/Resolving]
  - Biopsy [Unknown]
  - Pain [Unknown]
  - Influenza [Unknown]
